FAERS Safety Report 18772900 (Version 2)
Quarter: 2021Q1

REPORT INFORMATION
  Report Type: Report from Study
  Country: US (occurrence: US)
  Receive Date: 20210122
  Receipt Date: 20210208
  Transmission Date: 20210419
  Serious: Yes (Death, Hospitalization, Other)
  Sender: FDA-Public Use
  Company Number: NVSC2021US014127

PATIENT
  Age: 68 Year
  Sex: Female
  Weight: 64.4 kg

DRUGS (1)
  1. GLEEVEC [Suspect]
     Active Substance: IMATINIB MESYLATE
     Indication: GASTROINTESTINAL STROMAL TUMOUR
     Dosage: 400 MG
     Route: 048
     Dates: start: 20181004

REACTIONS (7)
  - Cardiac arrest [Fatal]
  - Blood pressure abnormal [Unknown]
  - Abdominal pain [Unknown]
  - Intestinal ischaemia [Unknown]
  - Ventricular tachycardia [Unknown]
  - Small intestinal obstruction [Unknown]
  - Pneumonia [Unknown]

NARRATIVE: CASE EVENT DATE: 20200518
